FAERS Safety Report 5394060-1 (Version None)
Quarter: 2007Q3

REPORT INFORMATION
  Report Type: 
  Country: None (occurrence: None)
  Receive Date: 20070723
  Receipt Date: 20070216
  Transmission Date: 20080115
  Serious: No
  Sender: FDA-Public Use
  Company Number: A0640064A

PATIENT
  Age: 61 Year
  Sex: Male

DRUGS (8)
  1. AVANDIA [Suspect]
     Dosage: 4MG PER DAY
     Route: 048
  2. METFORMIN HCL [Concomitant]
  3. ENALAPRIL MALEATE [Concomitant]
  4. HYDROCHLOROTHIAZIDE [Concomitant]
  5. LOVASTATIN [Concomitant]
  6. NIACIN [Concomitant]
  7. GLYBURIDE [Concomitant]
  8. MULTI-VITAMIN [Concomitant]

REACTIONS (2)
  - DRUG INEFFECTIVE [None]
  - PHARMACEUTICAL PRODUCT COMPLAINT [None]
